FAERS Safety Report 4970745-3 (Version None)
Quarter: 2006Q2

REPORT INFORMATION
  Report Type: 
  Country: None (occurrence: None)
  Receive Date: 20060406
  Receipt Date: 20060330
  Transmission Date: 20061013
  Serious: Yes (Death, Life-Threatening, Hospitalization)
  Sender: FDA-Public Use
  Company Number: HQWYE778030NOV05

PATIENT
  Age: 58 Year
  Sex: Male

DRUGS (5)
  1. RAPAMUNE [Suspect]
     Indication: PROPHYLAXIS AGAINST TRANSPLANT REJECTION
     Dosage: 8 + 6 MG 1 X PER 1 DAY ORAL
     Route: 048
     Dates: start: 20051111, end: 20051206
  2. RAPAMUNE [Suspect]
     Indication: PROPHYLAXIS AGAINST TRANSPLANT REJECTION
     Dosage: 8 + 6 MG 1 X PER 1 DAY ORAL
     Route: 048
     Dates: start: 20050607, end: 20051221
  3. DOXAZOSIN (DOXAZOSIN) [Concomitant]
  4. AMLODIPINE [Concomitant]
  5. CLORAZEPATE (CLORAZEPATE DIPOTASSIUM) [Concomitant]

REACTIONS (16)
  - ARTERIAL STENOSIS [None]
  - BLOOD LACTATE DEHYDROGENASE INCREASED [None]
  - CARDIAC ARREST [None]
  - CYTOMEGALOVIRUS INFECTION [None]
  - DRUG INEFFECTIVE [None]
  - DRUG TOXICITY [None]
  - HAEMODIALYSIS [None]
  - HAEMORRHAGIC INFARCTION [None]
  - HISTIOCYTOSIS HAEMATOPHAGIC [None]
  - KIDNEY TRANSPLANT REJECTION [None]
  - PLATELET COUNT DECREASED [None]
  - RENAL IMPAIRMENT [None]
  - RENAL TUBULAR NECROSIS [None]
  - THROMBOTIC MICROANGIOPATHY [None]
  - URINARY TRACT INFECTION PSEUDOMONAL [None]
  - VASCULAR GRAFT COMPLICATION [None]
